FAERS Safety Report 23833951 (Version 2)
Quarter: 2024Q2

REPORT INFORMATION
  Report Type: Spontaneous
  Country: US (occurrence: US)
  Receive Date: 20240509
  Receipt Date: 20240605
  Transmission Date: 20240715
  Serious: Yes (Death, Congenital Anomaly, Other)
  Sender: FDA-Public Use
  Company Number: US-SA-SAC20240424000556

PATIENT

DRUGS (1)
  1. DUPIXENT [Suspect]
     Active Substance: DUPILUMAB
     Dosage: UNK
     Route: 064

REACTIONS (8)
  - Foetal death [Fatal]
  - Talipes [Unknown]
  - Congenital musculoskeletal disorder [Unknown]
  - Ascites [Unknown]
  - Cardiomyopathy [Unknown]
  - Bone development abnormal [Unknown]
  - Cardiac disorder [Unknown]
  - Foetal exposure during pregnancy [Unknown]

NARRATIVE: CASE EVENT DATE: 20230224
